FAERS Safety Report 6979498-0 (Version None)
Quarter: 2010Q3

REPORT INFORMATION
  Report Type: 
  Country: None (occurrence: None)
  Receive Date: 20100913
  Receipt Date: 20100803
  Transmission Date: 20110219
  Serious: Yes (Hospitalization, Other)
  Sender: FDA-Public Use
  Company Number: US-BAXTER-2010BH005743

PATIENT
  Age: 39 Year
  Sex: Female
  Weight: 65 kg

DRUGS (39)
  1. HEPARIN SODIUM INJECTION [Suspect]
     Indication: HAEMODIALYSIS
     Route: 042
     Dates: start: 20080229, end: 20080229
  2. HEPARIN SODIUM INJECTION [Suspect]
     Indication: CATHETER PLACEMENT
     Route: 042
     Dates: start: 20080229, end: 20080229
  3. HEPARIN SODIUM INJECTION [Suspect]
     Indication: INTRAVENOUS CATHETER MANAGEMENT
     Route: 042
     Dates: start: 20080229, end: 20080229
  4. HEPARIN SODIUM INJECTION [Suspect]
     Route: 058
     Dates: start: 20080303, end: 20080303
  5. HEPARIN SODIUM INJECTION [Suspect]
     Route: 058
     Dates: start: 20080303, end: 20080303
  6. HEPARIN SODIUM INJECTION [Suspect]
     Route: 058
     Dates: start: 20080303, end: 20080303
  7. HEPARIN SODIUM INJECTION [Suspect]
     Route: 065
     Dates: start: 20080304, end: 20080304
  8. HEPARIN SODIUM INJECTION [Suspect]
     Route: 065
     Dates: start: 20080304, end: 20080304
  9. HEPARIN SODIUM INJECTION [Suspect]
     Route: 065
     Dates: start: 20080304, end: 20080304
  10. HEPARIN SODIUM INJECTION [Suspect]
     Route: 065
     Dates: start: 20080311, end: 20080311
  11. HEPARIN SODIUM INJECTION [Suspect]
     Route: 065
     Dates: start: 20080311, end: 20080311
  12. HEPARIN SODIUM INJECTION [Suspect]
     Route: 065
     Dates: start: 20080311, end: 20080311
  13. HEPARIN SODIUM INJECTION [Suspect]
     Route: 042
     Dates: start: 20080303, end: 20080318
  14. HEPARIN SODIUM INJECTION [Suspect]
     Route: 042
     Dates: start: 20080303, end: 20080318
  15. HEPARIN SODIUM INJECTION [Suspect]
     Route: 042
     Dates: start: 20080303, end: 20080318
  16. HEPARIN SODIUM INJECTION [Suspect]
     Route: 042
     Dates: start: 20080410, end: 20080419
  17. HEPARIN SODIUM INJECTION [Suspect]
     Route: 042
     Dates: start: 20080410, end: 20080419
  18. HEPARIN SODIUM INJECTION [Suspect]
     Route: 042
     Dates: start: 20080410, end: 20080419
  19. HEPARIN SODIUM 5,000 UNITS IN DEXTROSE 5% [Suspect]
     Indication: PRODUCT USED FOR UNKNOWN INDICATION
     Route: 041
     Dates: start: 20080311, end: 20080311
  20. ASPIRIN [Concomitant]
     Indication: PRODUCT USED FOR UNKNOWN INDICATION
     Route: 065
  21. PLAVIX [Concomitant]
     Indication: PRODUCT USED FOR UNKNOWN INDICATION
     Route: 065
  22. EPOGEN [Concomitant]
     Indication: PRODUCT USED FOR UNKNOWN INDICATION
     Route: 065
  23. LISINOPRIL [Concomitant]
     Indication: PRODUCT USED FOR UNKNOWN INDICATION
     Route: 065
  24. METOPROLOL TARTRATE [Concomitant]
     Indication: PRODUCT USED FOR UNKNOWN INDICATION
     Route: 065
  25. MIRTAZAPINE [Concomitant]
     Indication: PRODUCT USED FOR UNKNOWN INDICATION
     Route: 065
  26. AVELOX [Concomitant]
     Indication: PRODUCT USED FOR UNKNOWN INDICATION
     Route: 065
  27. SIMVASTATIN [Concomitant]
     Indication: PRODUCT USED FOR UNKNOWN INDICATION
     Route: 065
  28. PEPCID [Concomitant]
     Indication: PRODUCT USED FOR UNKNOWN INDICATION
     Route: 065
  29. LABETALOL HCL [Concomitant]
     Indication: PRODUCT USED FOR UNKNOWN INDICATION
     Route: 065
  30. NORCO [Concomitant]
     Indication: PRODUCT USED FOR UNKNOWN INDICATION
     Route: 048
  31. RENAGEL [Concomitant]
     Indication: PRODUCT USED FOR UNKNOWN INDICATION
     Route: 065
  32. DESMOPRESSIN ACETATE [Concomitant]
     Indication: PRODUCT USED FOR UNKNOWN INDICATION
     Route: 065
  33. NIFEDIPINE [Concomitant]
     Indication: PRODUCT USED FOR UNKNOWN INDICATION
     Route: 065
  34. ACTIVASE ^ROCHE^ [Concomitant]
     Indication: PRODUCT USED FOR UNKNOWN INDICATION
     Route: 065
  35. HYDROMORPHONE HCL [Concomitant]
     Indication: PRODUCT USED FOR UNKNOWN INDICATION
     Route: 065
  36. CEFAZOLIN [Concomitant]
     Indication: PRODUCT USED FOR UNKNOWN INDICATION
     Route: 065
  37. PAPAVERINE [Concomitant]
     Indication: PRODUCT USED FOR UNKNOWN INDICATION
     Route: 065
  38. ESZOPICLONE [Concomitant]
     Indication: PRODUCT USED FOR UNKNOWN INDICATION
     Route: 065
  39. HYDRALAZINE HCL [Concomitant]
     Indication: PRODUCT USED FOR UNKNOWN INDICATION
     Route: 065

REACTIONS (24)
  - ANAEMIA [None]
  - ANXIETY [None]
  - AZOTAEMIA [None]
  - DIZZINESS [None]
  - DYSPNOEA [None]
  - FEELING HOT [None]
  - HAEMATOMA [None]
  - HAEMORRHAGIC DIATHESIS [None]
  - HEPARIN-INDUCED THROMBOCYTOPENIA [None]
  - HYPERKALAEMIA [None]
  - HYPOAESTHESIA [None]
  - HYPOTENSION [None]
  - HYPOVOLAEMIA [None]
  - MOTOR DYSFUNCTION [None]
  - NECROSIS [None]
  - OEDEMA PERIPHERAL [None]
  - PAIN [None]
  - PLATELET DISORDER [None]
  - SCAR [None]
  - VASCULAR GRAFT COMPLICATION [None]
  - VASCULAR GRAFT OCCLUSION [None]
  - VASCULITIS [None]
  - VENOUS STENOSIS [None]
  - WOUND DEHISCENCE [None]
